FAERS Safety Report 5893120-6 (Version None)
Quarter: 2008Q3

REPORT INFORMATION
  Report Type: 
  Country: None (occurrence: None)
  Receive Date: 20080923
  Receipt Date: 20070813
  Transmission Date: 20090109
  Serious: No
  Sender: FDA-Public Use
  Company Number: US-ASTRAZENECA-2007UW19533

PATIENT
  Sex: Female

DRUGS (3)
  1. SEROQUEL [Suspect]
     Indication: ANXIETY
     Route: 048
  2. SEROQUEL [Suspect]
     Indication: HALLUCINATION, AUDITORY
     Route: 048
  3. SEROQUEL [Suspect]
     Indication: ANOREXIA
     Route: 048

REACTIONS (4)
  - AGORAPHOBIA [None]
  - ANXIETY [None]
  - DEPRESSION [None]
  - SOMNOLENCE [None]
